FAERS Safety Report 10028474 (Version 2)
Quarter: 2014Q2

REPORT INFORMATION
  Report Type: Spontaneous
  Country: CN (occurrence: CN)
  Receive Date: 20140321
  Receipt Date: 20140429
  Transmission Date: 20141212
  Serious: Yes (Death, Hospitalization)
  Sender: FDA-Public Use
  Company Number: CN-BRISTOL-MYERS SQUIBB COMPANY-20497111

PATIENT
  Age: 79 Year
  Sex: Male

DRUGS (6)
  1. YERVOY [Suspect]
     Indication: MALIGNANT MELANOMA
     Dosage: TOTAL OF 160MG DOSAGE
     Route: 041
     Dates: start: 20140303, end: 20140304
  2. APROVEL [Concomitant]
     Dosage: 1DF= 1/2# UNITS NOS.
  3. ULTRACET [Concomitant]
     Dosage: 1DF= 1# UNITS NOS.
  4. SENNOSIDE [Concomitant]
     Dosage: 1DF= 2# UNITS NOS.
  5. LACTULOSE [Concomitant]
  6. HALDOL [Concomitant]
     Dosage: 1DF= 1/2# UNITS NOS.

REACTIONS (1)
  - Pneumonia aspiration [Fatal]
